FAERS Safety Report 6196522-6 (Version None)
Quarter: 2009Q2

REPORT INFORMATION
  Report Type: 
  Country: None (occurrence: None)
  Receive Date: 20090518
  Receipt Date: 20090518
  Transmission Date: 20091009
  Serious: Yes (Hospitalization)
  Sender: FDA-Public Use
  Company Number: None

PATIENT
  Age: 45 Year
  Sex: Female
  Weight: 49.8957 kg

DRUGS (3)
  1. METOCLOPRAMIDE [Suspect]
     Indication: NAUSEA
     Dosage: 1 TABLET AS NEEDED NAUSEA, VOM EVERY PO PO
     Route: 048
     Dates: start: 20080806, end: 20090513
  2. METOCLOPRAMIDE [Suspect]
     Indication: VOMITING
     Dosage: 1 TABLET AS NEEDED NAUSEA, VOM EVERY PO PO
     Route: 048
     Dates: start: 20080806, end: 20090513
  3. METOCLOPRAMIDE [Suspect]
     Indication: NAUSEA
     Dosage: 1 TABLET AS NEEDED NAUSEA,VOM 4 TIMES DAILY PO
     Route: 048
     Dates: start: 20080721, end: 20090513

REACTIONS (12)
  - DEPRESSION [None]
  - DYSKINESIA [None]
  - DYSPNOEA [None]
  - EAR DISCOMFORT [None]
  - EYE DISORDER [None]
  - GRIMACING [None]
  - MUSCLE TWITCHING [None]
  - PALPITATIONS [None]
  - PUPILS UNEQUAL [None]
  - SUICIDE ATTEMPT [None]
  - TREMOR [None]
  - VISION BLURRED [None]
